FAERS Safety Report 24685075 (Version 1)
Quarter: 2024Q4

REPORT INFORMATION
  Report Type: Report from Study
  Country: IN (occurrence: IN)
  Receive Date: 20241202
  Receipt Date: 20241202
  Transmission Date: 20250115
  Serious: Yes (Death, Life-Threatening, Other)
  Sender: AUROBINDO
  Company Number: IN-MLMSERVICE-20160810-0390355-7

PATIENT
  Age: 5 Year
  Sex: Male

DRUGS (6)
  1. MELPHALAN [Suspect]
     Active Substance: MELPHALAN
     Indication: Acute lymphocytic leukaemia
     Dosage: 140 MILLIGRAM/SQ. METER, ON DAY 1
     Route: 065
  2. CYCLOSPORINE [Suspect]
     Active Substance: CYCLOSPORINE
     Indication: Prophylaxis against graft versus host disease
     Dosage: 6 MILLIGRAM/KILOGRAM, TWO DIVIDED DOSES
     Route: 042
  3. MYCOPHENOLATE MOFETIL [Suspect]
     Active Substance: MYCOPHENOLATE MOFETIL
     Indication: Prophylaxis against graft versus host disease
     Dosage: 45 MILLIGRAM/KILOGRAM, ONCE A DAY, IN ORAL SUSPENSION OR TABLET FORM
     Route: 065
  4. CYCLOPHOSPHAMIDE [Suspect]
     Active Substance: CYCLOPHOSPHAMIDE
     Indication: Prophylaxis against graft versus host disease
     Dosage: 50 MILLIGRAM/KILOGRAM, ON DAYS 3 AND 4
     Route: 065
  5. FLUDARABINE [Suspect]
     Active Substance: FLUDARABINE PHOSPHATE
     Indication: Acute lymphocytic leukaemia
     Dosage: 30 MILLIGRAM/SQ. METER, FOR FIVE DAYS FROM DAY 6
     Route: 065
  6. BUSULFAN [Suspect]
     Active Substance: BUSULFAN
     Indication: Acute lymphocytic leukaemia
     Dosage: 0.8 MILLIGRAM/KILOGRAM, FOUR TIMES/DAY, FOR 12 DOSES
     Route: 065

REACTIONS (3)
  - Pneumonia cytomegaloviral [Fatal]
  - Aspergillus infection [Fatal]
  - Drug ineffective [Fatal]
